FAERS Safety Report 4726098-9 (Version None)
Quarter: 2005Q3

REPORT INFORMATION
  Report Type: 
  Country: None (occurrence: None)
  Receive Date: 20050725
  Receipt Date: 20050712
  Transmission Date: 20060218
  Serious: Yes (Other)
  Sender: FDA-Public Use
  Company Number: 2005073989

PATIENT
  Sex: Female

DRUGS (2)
  1. BEXTRA [Suspect]
     Indication: OSTEOARTHRITIS
     Dosage: ORAL
     Route: 048
     Dates: end: 20050101
  2. BEXRA IV/IM (PARECOXIB) [Suspect]
     Indication: OSTEOARTHRITIS
     Dosage: 40 MG
     Dates: start: 20041001

REACTIONS (8)
  - ERYTHEMA [None]
  - HYPERSENSITIVITY [None]
  - LARYNGEAL OEDEMA [None]
  - PRURITUS [None]
  - PYREXIA [None]
  - SWELLING [None]
  - TACHYCARDIA [None]
  - URINE OUTPUT DECREASED [None]
